FAERS Safety Report 6111636-4 (Version None)
Quarter: 2009Q1

REPORT INFORMATION
  Report Type: 
  Country: None (occurrence: None)
  Receive Date: 20090311
  Receipt Date: 20090226
  Transmission Date: 20090719
  Serious: Yes (Other)
  Sender: FDA-Public Use
  Company Number: GB-PFIZER INC-2009176780

PATIENT

DRUGS (6)
  1. DOXYCYCLINE HYCLATE [Suspect]
     Indication: LOWER RESPIRATORY TRACT INFECTION
     Dosage: 100 MG, 1X/DAY
     Route: 048
     Dates: start: 20090119, end: 20090126
  2. ASPIRIN [Concomitant]
     Route: 048
  3. ATROVENT [Concomitant]
  4. SALBUTAMOL [Concomitant]
  5. SERETIDE [Concomitant]
  6. SIMVASTATIN [Concomitant]
     Route: 048

REACTIONS (1)
  - LIVER FUNCTION TEST ABNORMAL [None]
